FAERS Safety Report 5961459-1 (Version None)
Quarter: 2008Q4

REPORT INFORMATION
  Report Type: 
  Country: None (occurrence: None)
  Receive Date: 20081121
  Receipt Date: 20081112
  Transmission Date: 20090506
  Serious: Yes (Other)
  Sender: FDA-Public Use
  Company Number: US-JNJCH-2008052019

PATIENT
  Age: 53 Year
  Sex: Female
  Weight: 58.1 kg

DRUGS (1)
  1. LISTERINE TOOTH DEFENSE [Suspect]
     Indication: DENTAL CARE
     Dosage: TEXT:ONE CAPFUL TWICE A WEEK
     Route: 048

REACTIONS (3)
  - APPLICATION SITE BURN [None]
  - FUNGAL INFECTION [None]
  - TONGUE DISORDER [None]
